FAERS Safety Report 8386625-X (Version None)
Quarter: 2012Q2

REPORT INFORMATION
  Report Type: 
  Country: None (occurrence: None)
  Receive Date: 20120525
  Receipt Date: 20120516
  Transmission Date: 20120825
  Serious: Yes (Hospitalization)
  Sender: FDA-Public Use
  Company Number: US-ABBOTT-12P-163-0934197-00

PATIENT
  Age: 66 Year
  Sex: Female

DRUGS (6)
  1. HUMIRA [Suspect]
     Dates: start: 20120501
  2. ENTOCORT EC [Concomitant]
     Indication: PRODUCT USED FOR UNKNOWN INDICATION
  3. OMETRAVOLE DR [Concomitant]
     Indication: DYSPNOEA
  4. LORTAB [Concomitant]
     Indication: PAIN
     Dosage: 7.5/500MG
  5. HUMIRA [Suspect]
     Indication: CROHN'S DISEASE
  6. AMBIEN [Concomitant]
     Indication: INSOMNIA
     Dosage: 10MG, AT BEDTIME

REACTIONS (6)
  - DEHYDRATION [None]
  - BLOOD POTASSIUM DECREASED [None]
  - FALL [None]
  - GAIT DISTURBANCE [None]
  - BREAST PAIN [None]
  - BLOOD SODIUM DECREASED [None]
